FAERS Safety Report 21799051 (Version 1)
Quarter: 2022Q4

REPORT INFORMATION
  Report Type: Spontaneous
  Country: FR (occurrence: FR)
  Receive Date: 20221230
  Receipt Date: 20221230
  Transmission Date: 20230113
  Serious: Yes (Other)
  Sender: FDA-Public Use
  Company Number: None

PATIENT
  Age: 75 Year
  Sex: Female
  Weight: 65 kg

DRUGS (2)
  1. KISQALI [Interacting]
     Active Substance: RIBOCICLIB
     Indication: Breast cancer
     Dosage: 600 MG, QD (600MG*1X/J)
     Route: 048
     Dates: start: 20220704, end: 20220903
  2. CITALOPRAM [Interacting]
     Active Substance: CITALOPRAM HYDROBROMIDE
     Indication: Depression
     Dosage: 20 MG, QD (20MG/J)
     Route: 048
     Dates: start: 2000

REACTIONS (2)
  - Atrioventricular block [Unknown]
  - Electrocardiogram QT prolonged [Recovered/Resolved with Sequelae]

NARRATIVE: CASE EVENT DATE: 20220903
